FAERS Safety Report 14214621 (Version 2)
Quarter: 2018Q1

REPORT INFORMATION
  Report Type: Spontaneous
  Country: US (occurrence: US)
  Receive Date: 20171122
  Receipt Date: 20180316
  Transmission Date: 20180508
  Serious: Yes (Hospitalization)
  Sender: FDA-Public Use
  Company Number: US-ROCHE-1958837

PATIENT
  Sex: Male
  Weight: 56.75 kg

DRUGS (5)
  1. PULMOZYME [Suspect]
     Active Substance: DORNASE ALFA
     Indication: CYSTIC FIBROSIS
     Dosage: 1MG/ML 2.5ML BOX 3, INHALE; ONGOING
     Route: 055
     Dates: start: 20170216
  2. CREON [Concomitant]
     Active Substance: PANCRELIPASE AMYLASE\PANCRELIPASE LIPASE\PANCRELIPASE PROTEASE
     Dosage: ONGOING: UNKNOWN
     Route: 048
     Dates: start: 20170216
  3. PULMOZYME [Suspect]
     Active Substance: DORNASE ALFA
     Indication: IMMUNODEFICIENCY
     Route: 055
     Dates: start: 20170217
  4. ATROVENT [Concomitant]
     Active Substance: IPRATROPIUM BROMIDE
     Dosage: ONGOING: UNKNOWN
     Route: 065
     Dates: start: 20180216
  5. ZANTAC [Concomitant]
     Active Substance: RANITIDINE HYDROCHLORIDE
     Dosage: ONGOING: UNKNOWN
     Route: 048
     Dates: start: 20170216

REACTIONS (3)
  - Infective pulmonary exacerbation of cystic fibrosis [Unknown]
  - Off label use [Unknown]
  - Intentional product use issue [Unknown]
